FAERS Safety Report 5480320-2 (Version None)
Quarter: 2007Q3

REPORT INFORMATION
  Report Type: 
  Country: None (occurrence: None)
  Receive Date: 20070913
  Receipt Date: 20060731
  Transmission Date: 20080115
  Serious: Yes (Other)
  Sender: FDA-Public Use
  Company Number: PHEH2006US08789

PATIENT
  Age: 86 Year
  Sex: Female

DRUGS (1)
  1. DIOVAN [Suspect]
     Indication: HYPERTENSION
     Dosage: 320MG, QD, ORAL
     Route: 048
     Dates: start: 20060419, end: 20060731

REACTIONS (1)
  - BLOOD PRESSURE SYSTOLIC INCREASED [None]
